FAERS Safety Report 5943334-1 (Version None)
Quarter: 2008Q4

REPORT INFORMATION
  Report Type: 
  Country: None (occurrence: None)
  Receive Date: 20081105
  Receipt Date: 20081105
  Transmission Date: 20090506
  Serious: Yes (Hospitalization)
  Sender: FDA-Public Use
  Company Number: None

PATIENT
  Sex: Male
  Weight: 73.9 kg

DRUGS (16)
  1. LENALIDOMIDE [Suspect]
     Indication: MULTIPLE MYELOMA
     Dosage: 25MG QD X 21DAYS /MO. 047
     Dates: start: 20080917, end: 20080929
  2. LENALIDOMIDE [Suspect]
     Indication: MULTIPLE MYELOMA
     Dosage: 25MG QD X 21DAYS /MO. 047
     Dates: start: 20081017, end: 20081102
  3. DEXAMETHASONE 0.5MG TAB [Suspect]
     Dosage: 40MG DAYS 1, 8, 15, + 22 047
     Dates: start: 20080917
  4. DEXAMETHASONE 0.5MG TAB [Suspect]
     Dosage: 40MG DAYS 1, 8, 15, + 22 047
     Dates: start: 20080924
  5. DEXAMETHASONE 0.5MG TAB [Suspect]
     Dosage: 40MG DAYS 1, 8, 15, + 22 047
     Dates: start: 20081017
  6. DEXAMETHASONE 0.5MG TAB [Suspect]
     Dosage: 40MG DAYS 1, 8, 15, + 22 047
     Dates: start: 20081024
  7. DEXAMETHASONE 0.5MG TAB [Suspect]
     Dosage: 40MG DAYS 1, 8, 15, + 22 047
     Dates: start: 20081031
  8. PRILOSEC [Concomitant]
  9. CIPRO [Concomitant]
  10. ACYCLOVIR [Concomitant]
  11. SERTRALINE [Concomitant]
  12. NASONEX [Concomitant]
  13. XANAX [Concomitant]
  14. DIFLUCAN [Concomitant]
  15. LOPRESSOR [Concomitant]
  16. ASPIRIN [Concomitant]

REACTIONS (2)
  - FALL [None]
  - SYNCOPE [None]
